FAERS Safety Report 9235944 (Version 3)
Quarter: 2013Q2

REPORT INFORMATION
  Report Type: Report from Study
  Country: GB (occurrence: GB)
  Receive Date: 20130417
  Receipt Date: 20130607
  Transmission Date: 20140414
  Serious: Yes (Death)
  Sender: FDA-Public Use
  Company Number: GB-GENZYME-CAMP-1002852

PATIENT
  Age: 51 Year
  Sex: Male

DRUGS (4)
  1. CAMPATH [Suspect]
     Indication: PROGRESSIVE RELAPSING MULTIPLE SCLEROSIS
     Dosage: UNK (FIRST COURSE)
     Route: 042
     Dates: start: 20080112
  2. CAMPATH [Suspect]
     Dosage: 12 MG, QD (SECOND COURSE)
     Route: 042
     Dates: start: 20100113, end: 20100115
  3. METHYLPREDNISOLONE [Concomitant]
     Indication: PROGRESSIVE RELAPSING MULTIPLE SCLEROSIS
     Dosage: 1 G, UNK
     Route: 065
  4. GABAPENTIN [Concomitant]
     Indication: NEURALGIA
     Dosage: UNK
     Route: 065

REACTIONS (5)
  - Myocardial infarction [Fatal]
  - Rash [Recovered/Resolved]
  - Sleep disorder [Unknown]
  - White blood cell count decreased [Unknown]
  - Off label use [Unknown]
